FAERS Safety Report 24128196 (Version 2)
Quarter: 2024Q3

REPORT INFORMATION
  Report Type: Report from Study
  Country: BE (occurrence: BE)
  Receive Date: 20240723
  Receipt Date: 20240725
  Transmission Date: 20241016
  Serious: Yes (Hospitalization, Other)
  Sender: ABBVIE
  Company Number: BE-ABBVIE-5845890

PATIENT
  Sex: Male
  Weight: 75 kg

DRUGS (22)
  1. CARBIDOPA\LEVODOPA [Suspect]
     Active Substance: CARBIDOPA\LEVODOPA
     Indication: Parkinson^s disease
     Route: 050
     Dates: start: 20220705
  2. CARBIDOPA\LEVODOPA [Suspect]
     Active Substance: CARBIDOPA\LEVODOPA
     Dosage: MD: 8.0 ML, CD: 3.0 ML/H, ED: 1.80 ML DURING 16 HOURS
     Route: 050
     Dates: start: 20231121
  3. BENSERAZIDE\LEVODOPA [Concomitant]
     Active Substance: BENSERAZIDE\LEVODOPA
     Indication: Product used for unknown indication
  4. BENSERAZIDE\LEVODOPA [Concomitant]
     Active Substance: BENSERAZIDE\LEVODOPA
     Indication: Product used for unknown indication
     Dosage: FORM STRENGTH: 125 MILLIGRAM ?FREQUENCY TEXT: 22.00
  5. STALEVO [Concomitant]
     Active Substance: CARBIDOPA\ENTACAPONE\LEVODOPA
     Indication: Product used for unknown indication
     Dosage: FORM STRENGTH: 100?FREQUENCY TEXT: 12.00, 16.00
  6. STALEVO [Concomitant]
     Active Substance: CARBIDOPA\ENTACAPONE\LEVODOPA
     Indication: Product used for unknown indication
     Dosage: FORM STRENGTH: 150?FREQUENCY TEXT: 06.00, 10.00
  7. ASPIRIN [Concomitant]
     Active Substance: ASPIRIN
     Indication: Product used for unknown indication
     Dosage: FORM STRENGTH: 80
  8. LORMETAZEPAM FAR [Concomitant]
     Indication: Product used for unknown indication
     Dosage: FORM STRENGTH: 2 MILLIGRAM
  9. INDAPAMIDE\PERINDOPRIL [Concomitant]
     Active Substance: INDAPAMIDE\PERINDOPRIL
     Indication: Product used for unknown indication
     Dosage: FORM STRENGTH: 2.5 MILLIGRAM
  10. XANAX [Concomitant]
     Active Substance: ALPRAZOLAM
     Indication: Product used for unknown indication
     Dosage: FORM STRENGTH: 0.5 MILLIGRAM
  11. PROZAC [Concomitant]
     Active Substance: FLUOXETINE HYDROCHLORIDE
     Indication: Product used for unknown indication
     Dosage: FORM STRENGTH: 20
  12. BENSERAZIDE\LEVODOPA [Concomitant]
     Active Substance: BENSERAZIDE\LEVODOPA
     Indication: Product used for unknown indication
     Dosage: FORM STRENGTH: 250?FREQUENCY TEXT: 18.00, 20.00
  13. ANTIMETIL [Concomitant]
     Indication: Product used for unknown indication
     Dosage: FREQUENCY TEXT: BEFORE MEALS
  14. TRAMADOL HYDROCHLORIDE [Concomitant]
     Active Substance: TRAMADOL HYDROCHLORIDE
     Indication: Product used for unknown indication
     Dosage: FORM STRENGTH: 100
  15. OTILONIUM BROMIDE [Concomitant]
     Active Substance: OTILONIUM BROMIDE
     Indication: Product used for unknown indication
     Dosage: FORM STRENGTH: 40
  16. Magnetop [Concomitant]
     Indication: Product used for unknown indication
     Dosage: SACHET
  17. MOTILIUM [Concomitant]
     Active Substance: DOMPERIDONE
     Indication: Product used for unknown indication
     Dosage: FREQUENCY TEXT: PER MEALS
  18. Pantomed [Concomitant]
     Indication: Product used for unknown indication
     Dosage: FORM STRENGTH: 20 MILLIGRAM
  19. LIPITOR [Concomitant]
     Active Substance: ATORVASTATIN CALCIUM
     Indication: Product used for unknown indication
     Dosage: FORM STRENGTH: 10
  20. TRAZODONE [Concomitant]
     Active Substance: TRAZODONE HYDROCHLORIDE
     Indication: Product used for unknown indication
     Dosage: FORM STRENGTH: 100
  21. OMIC [Concomitant]
     Indication: Product used for unknown indication
     Dosage: FORM STRENGTH: 0.4 MILLIGRAM
  22. ENOXAPARIN SODIUM [Concomitant]
     Active Substance: ENOXAPARIN SODIUM
     Indication: Product used for unknown indication
     Dosage: FORM STRENGTH: 40
     Route: 058

REACTIONS (6)
  - Internal haemorrhage [Unknown]
  - Balance disorder [Not Recovered/Not Resolved]
  - Diplopia [Unknown]
  - Loss of personal independence in daily activities [Unknown]
  - Fall [Unknown]
  - Unevaluable event [Not Recovered/Not Resolved]

NARRATIVE: CASE EVENT DATE: 20240701
